FAERS Safety Report 22257588 (Version 2)
Quarter: 2023Q2

REPORT INFORMATION
  Report Type: Spontaneous
  Country: US (occurrence: None)
  Receive Date: 20230427
  Receipt Date: 20230505
  Transmission Date: 20230722
  Serious: No
  Sender: FDA-Public Use
  Company Number: 2023A097153

PATIENT
  Sex: Female

DRUGS (5)
  1. TEZSPIRE [Suspect]
     Active Substance: TEZEPELUMAB-EKKO
     Indication: Asthma
     Dates: start: 20230214
  2. ATENOLOL [Suspect]
     Active Substance: ATENOLOL
  3. BUDESONIDE [Suspect]
     Active Substance: BUDESONIDE
     Route: 055
  4. OMEPRAZOLE [Suspect]
     Active Substance: OMEPRAZOLE
     Route: 048
  5. ROSUVASTATIN [Suspect]
     Active Substance: ROSUVASTATIN

REACTIONS (1)
  - Drug ineffective [Unknown]
